FAERS Safety Report 12663549 (Version 3)
Quarter: 2016Q4

REPORT INFORMATION
  Report Type: Spontaneous
  Country: FR (occurrence: FR)
  Receive Date: 20160818
  Receipt Date: 20161006
  Transmission Date: 20170207
  Serious: Yes (Death, Life-Threatening, Hospitalization, Other)
  Sender: FDA-Public Use
  Company Number: FR-PFIZER INC-2016382625

PATIENT
  Age: 69 Year
  Sex: Female
  Weight: 70 kg

DRUGS (25)
  1. ARACYTINE [Suspect]
     Active Substance: CYTARABINE
     Dosage: 40 MG, SINGLE
     Route: 037
     Dates: start: 20160601, end: 20160601
  2. ICLUSIG [Suspect]
     Active Substance: PONATINIB
     Dosage: 45 MG, 1X/DAY
     Route: 048
     Dates: start: 20160606, end: 20160615
  3. TARDYFERON [Concomitant]
     Active Substance: FERROUS SULFATE
     Dosage: 80 MG, DAILY
  4. HYDROCORTISONE UPJOHN [Concomitant]
     Active Substance: HYDROCORTISONE
     Dosage: 20 MG, SINGLE
     Route: 037
     Dates: start: 20160603, end: 20160603
  5. PONATINIB HYDROCHLORIDE [Concomitant]
     Active Substance: PONATINIB
     Indication: B-CELL TYPE ACUTE LEUKAEMIA
     Dosage: UNK
     Route: 048
  6. ARACYTINE [Suspect]
     Active Substance: CYTARABINE
     Dosage: 40 MG, SINGLE
     Route: 037
     Dates: start: 20160603, end: 20160603
  7. DEPOCYTE [Suspect]
     Active Substance: CYTARABINE
     Dosage: 50 MG, SINGLE
     Route: 037
     Dates: start: 20160616, end: 20160616
  8. OMEPRAZOLE. [Concomitant]
     Active Substance: OMEPRAZOLE
     Dosage: 20 MG, DAILY
  9. HYDROCORTISONE UPJOHN [Concomitant]
     Active Substance: HYDROCORTISONE
     Dosage: 20 MG, SINGLE
     Route: 037
     Dates: start: 20160606, end: 20160606
  10. VINDESINE [Concomitant]
     Active Substance: VINDESINE
     Dosage: 2 MG/M2, WEEKLY
     Route: 042
     Dates: start: 20160608
  11. ARACYTINE [Suspect]
     Active Substance: CYTARABINE
     Dosage: 40 MG, SINGLE
     Route: 037
     Dates: start: 20160608, end: 20160608
  12. CLONAZEPAM. [Concomitant]
     Active Substance: CLONAZEPAM
     Dosage: 2 GTT, 3X/DAY
  13. DEXAMETHASONE. [Concomitant]
     Active Substance: DEXAMETHASONE
     Dosage: 20 MG, WEEKLY
     Route: 042
     Dates: start: 20160608
  14. METHOTREXATE (METHOTREXATE SODIUM) [Suspect]
     Active Substance: METHOTREXATE SODIUM
     Dosage: 15 MG, SINGLE
     Route: 037
     Dates: start: 20160603, end: 20160603
  15. HYDROCORTISONE UPJOHN [Concomitant]
     Active Substance: HYDROCORTISONE
     Dosage: 20 MG, SINGLE
     Route: 037
     Dates: start: 20160601, end: 20160601
  16. ARACYTINE [Suspect]
     Active Substance: CYTARABINE
     Dosage: 40 MG, SINGLE
     Route: 037
     Dates: start: 20160530, end: 20160530
  17. ARACYTINE [Suspect]
     Active Substance: CYTARABINE
     Dosage: 40 MG, SINGLE
     Route: 037
     Dates: start: 20160606, end: 20160606
  18. METHOTREXATE (METHOTREXATE SODIUM) [Suspect]
     Active Substance: METHOTREXATE SODIUM
     Dosage: 15 MG, SINGLE
     Route: 037
     Dates: start: 20160608, end: 20160608
  19. HYDROCORTISONE UPJOHN [Concomitant]
     Active Substance: HYDROCORTISONE
     Dosage: 20 MG, SINGLE
     Route: 037
     Dates: start: 20160530, end: 20160530
  20. HYDROCORTISONE UPJOHN [Concomitant]
     Active Substance: HYDROCORTISONE
     Dosage: 20 MG, SINGLE
     Route: 037
     Dates: start: 20160608, end: 20160608
  21. METHOTREXATE (METHOTREXATE SODIUM) [Suspect]
     Active Substance: METHOTREXATE SODIUM
     Dosage: 15 MG, SINGLE
     Route: 037
     Dates: start: 20160601, end: 20160601
  22. CACIT VITAMIN D3 [Concomitant]
     Active Substance: CALCIUM CARBONATE\CHOLECALCIFEROL
     Dosage: 2 DF, DAILY (CACIT VITAMINE D3 500 MG/440 IU))
  23. METHOTREXATE (METHOTREXATE SODIUM) [Suspect]
     Active Substance: METHOTREXATE SODIUM
     Dosage: 15 MG, SINGLE
     Route: 037
     Dates: start: 20160530, end: 20160530
  24. METHOTREXATE (METHOTREXATE SODIUM) [Suspect]
     Active Substance: METHOTREXATE SODIUM
     Dosage: 15 MG, SINGLE
     Route: 037
     Dates: start: 20160606, end: 20160606
  25. ICLUSIG [Suspect]
     Active Substance: PONATINIB
     Dosage: 30 MG, 1X/DAY
     Route: 048
     Dates: start: 20160616, end: 20160620

REACTIONS (16)
  - Leukopenia [Unknown]
  - Coma [Fatal]
  - Bicytopenia [Unknown]
  - Encephalopathy [Fatal]
  - Thrombocytopenia [Fatal]
  - Histiocytosis haematophagic [Unknown]
  - Lumbar vertebral fracture [Unknown]
  - Agranulocytosis [Unknown]
  - Hypertriglyceridaemia [Unknown]
  - Cholestasis [Fatal]
  - Anaemia [Fatal]
  - Inflammation [Unknown]
  - Rash [Unknown]
  - Pyrexia [Unknown]
  - Acute kidney injury [Fatal]
  - Hepatic function abnormal [Unknown]

NARRATIVE: CASE EVENT DATE: 20160607
